FAERS Safety Report 5701179-1 (Version None)
Quarter: 2008Q2

REPORT INFORMATION
  Report Type: 
  Country: None (occurrence: None)
  Receive Date: 20080410
  Receipt Date: 20080407
  Transmission Date: 20081010
  Serious: Yes (Hospitalization)
  Sender: FDA-Public Use
  Company Number: US-BOEHRINGER INGELHEIM GMBH, GERMANY-2008-BP-05489RO

PATIENT
  Sex: Male

DRUGS (1)
  1. PREDNISONE [Suspect]

REACTIONS (2)
  - BONE DISORDER [None]
  - CHONDROPATHY [None]
